FAERS Safety Report 17797183 (Version 2)
Quarter: 2020Q2

REPORT INFORMATION
  Report Type: Report from Study
  Country: US (occurrence: US)
  Receive Date: 20200518
  Receipt Date: 20200520
  Transmission Date: 20200714
  Serious: Yes (Congenital Anomaly)
  Sender: FDA-Public Use
  Company Number: US-TEVA-2018-US-993383

PATIENT
  Sex: Female
  Weight: 9.13 kg

DRUGS (3)
  1. PROVIGIL [Suspect]
     Active Substance: MODAFINIL
     Indication: NARCOLEPSY
     Dosage: 100 MILLIGRAM DAILY;
     Route: 064
     Dates: start: 2008
  2. PRENATAL VITAMINS [Concomitant]
     Active Substance: VITAMINS
     Indication: PREGNANCY
     Route: 064
     Dates: start: 2015
  3. LEVO THYROXINE [Concomitant]
     Indication: HYPOTHYROIDISM
     Route: 064
     Dates: start: 201801

REACTIONS (3)
  - Macrocephaly [Unknown]
  - Rhinitis allergic [Unknown]
  - Foetal exposure during pregnancy [Unknown]
